FAERS Safety Report 8470255-5 (Version None)
Quarter: 2012Q2

REPORT INFORMATION
  Report Type: 
  Country: None (occurrence: None)
  Receive Date: 20120627
  Receipt Date: 20120618
  Transmission Date: 20120825
  Serious: Yes (Hospitalization)
  Sender: FDA-Public Use
  Company Number: US-JNJFOC-20120609290

PATIENT
  Sex: Female
  Weight: 58.97 kg

DRUGS (12)
  1. DURAGESIC-100 [Suspect]
     Dosage: 50MCG EVERY 2 DAYS; AND ANOTHER 50MCG EVERY 2 DAYS - ALTERNATE DAYS.
     Route: 062
  2. DURAGESIC-100 [Suspect]
     Indication: MULTIPLE SCLEROSIS
     Route: 062
  3. DURAGESIC-100 [Suspect]
     Indication: PAIN
     Route: 062
     Dates: start: 19980101
  4. FENTANYL CITRATE [Suspect]
     Route: 062
     Dates: start: 20050301, end: 20050601
  5. DURAGESIC-100 [Suspect]
     Dosage: 50 UG/HR+50 (ALTERNATE DAYS) UG/HR
     Route: 062
     Dates: start: 20090101
  6. DURAGESIC-100 [Suspect]
     Route: 062
  7. DURAGESIC-100 [Suspect]
     Dosage: 50MCG EVERY 2 DAYS; AND ANOTHER 50MCG EVERY 2 DAYS - ALTERNATE DAYS.
     Route: 062
  8. FENTANYL CITRATE [Suspect]
     Indication: PAIN
     Dosage: ON ALTERNATE DAYS
     Route: 062
     Dates: start: 20050301, end: 20050601
  9. FENTANYL CITRATE [Suspect]
     Route: 062
     Dates: start: 20050301, end: 20050601
  10. DURAGESIC-100 [Suspect]
     Route: 062
     Dates: start: 19980101
  11. FENTANYL CITRATE [Suspect]
     Indication: MULTIPLE SCLEROSIS
     Dosage: ON ALTERNATE DAYS
     Route: 062
     Dates: start: 20050301, end: 20050601
  12. UNKNOWN MEDICATION [Concomitant]
     Indication: MULTIPLE SCLEROSIS
     Route: 065

REACTIONS (8)
  - PAIN [None]
  - DRUG INEFFECTIVE [None]
  - BREAKTHROUGH PAIN [None]
  - INCORRECT STORAGE OF DRUG [None]
  - DRUG LEVEL DECREASED [None]
  - INCORRECT DRUG ADMINISTRATION RATE [None]
  - MEMORY IMPAIRMENT [None]
  - SENSORY DISTURBANCE [None]
